FAERS Safety Report 19939468 (Version 1)
Quarter: 2021Q4

REPORT INFORMATION
  Report Type: Spontaneous
  Country: FR (occurrence: FR)
  Receive Date: 20211011
  Receipt Date: 20211011
  Transmission Date: 20220303
  Serious: Yes (Death, Hospitalization)
  Sender: FDA-Public Use
  Company Number: None

PATIENT
  Age: 71 Year
  Sex: Female
  Weight: 55 kg

DRUGS (1)
  1. KEYTRUDA [Suspect]
     Active Substance: PEMBROLIZUMAB
     Indication: Metastatic malignant melanoma
     Dosage: 2 CURES
     Route: 041
     Dates: start: 20210607, end: 20210628

REACTIONS (3)
  - Diaphragm muscle weakness [Fatal]
  - Myositis [Not Recovered/Not Resolved]
  - Myocarditis [Fatal]

NARRATIVE: CASE EVENT DATE: 20210710
